FAERS Safety Report 10619673 (Version 1)
Quarter: 2014Q4

REPORT INFORMATION
  Report Type: Spontaneous
  Country: US (occurrence: None)
  Receive Date: 20141201
  Receipt Date: 20141201
  Transmission Date: 20150529
  Serious: No
  Sender: FDA-Public Use
  Company Number: None

PATIENT
  Age: 30 Year
  Sex: Female
  Weight: 72.58 kg

DRUGS (1)
  1. MENS ROGAINE UNSCENTED FORMULA [Suspect]
     Active Substance: MINOXIDIL
     Indication: ALOPECIA
     Dosage: 1/2 CAPFUL?TWICE DAILY?APPLIED TO A SURFACE, USUALLY THE SKIN
     Dates: start: 20100510, end: 20110228

REACTIONS (2)
  - Hair texture abnormal [None]
  - Hair growth abnormal [None]

NARRATIVE: CASE EVENT DATE: 20100510
